FAERS Safety Report 22268655 (Version 1)
Quarter: 2023Q2

REPORT INFORMATION
  Report Type: Spontaneous
  Country: US (occurrence: None)
  Receive Date: 20230501
  Receipt Date: 20230501
  Transmission Date: 20230722
  Serious: No
  Sender: FDA-Public Use
  Company Number: 2023A092219

PATIENT
  Age: 1083 Month

DRUGS (2)
  1. LOKELMA [Suspect]
     Active Substance: SODIUM ZIRCONIUM CYCLOSILICATE
     Route: 048
     Dates: start: 20230403
  2. LOKELMA [Suspect]
     Active Substance: SODIUM ZIRCONIUM CYCLOSILICATE
     Route: 048
     Dates: start: 20230403

REACTIONS (3)
  - Weight increased [Unknown]
  - Peripheral swelling [Unknown]
  - Expired product administered [Unknown]

NARRATIVE: CASE EVENT DATE: 20230401
